FAERS Safety Report 16551239 (Version 1)
Quarter: 2019Q3

REPORT INFORMATION
  Report Type: Spontaneous
  Country: CA (occurrence: CA)
  Receive Date: 20190710
  Receipt Date: 20190710
  Transmission Date: 20191004
  Serious: Yes (Other)
  Sender: FDA-Public Use
  Company Number: CA-HETERO-HET2019CA00914

PATIENT
  Age: 29 Year
  Sex: Female

DRUGS (3)
  1. CYPROTERONE [Suspect]
     Active Substance: CYPROTERONE
     Indication: HORMONE THERAPY
     Dosage: 25 MG, QD
     Route: 065
  2. FINASTERIDE. [Suspect]
     Active Substance: FINASTERIDE
     Indication: HORMONE THERAPY
     Dosage: 1 MG
     Route: 065
  3. ESTRADIOL. [Suspect]
     Active Substance: ESTRADIOL
     Indication: HORMONE THERAPY
     Dosage: 4 MG, BID
     Route: 060

REACTIONS (2)
  - Off label use [Unknown]
  - Ventricular extrasystoles [Unknown]
